FAERS Safety Report 12644616 (Version 2)
Quarter: 2016Q4

REPORT INFORMATION
  Report Type: Spontaneous
  Country: EG (occurrence: EG)
  Receive Date: 20160811
  Receipt Date: 20161005
  Transmission Date: 20170207
  Serious: Yes (Other)
  Sender: FDA-Public Use
  Company Number: EG-BAYER-2016-150309

PATIENT
  Sex: Male

DRUGS (1)
  1. NEXAVAR [Suspect]
     Active Substance: SORAFENIB

REACTIONS (5)
  - Drug ineffective [None]
  - Hepatic cancer stage IV [None]
  - Tumour marker increased [None]
  - Drug diversion [None]
  - Metastases to bone [None]
